FAERS Safety Report 4686988-2 (Version None)
Quarter: 2005Q2

REPORT INFORMATION
  Report Type: 
  Country: None (occurrence: None)
  Receive Date: 20050606
  Receipt Date: 20050520
  Transmission Date: 20051028
  Serious: Yes (Death, Other)
  Sender: FDA-Public Use
  Company Number: US_0505117774

PATIENT
  Age: 26 Year
  Sex: Male

DRUGS (6)
  1. GEMCITABINE HYDROCHLORIDE-IV (GEMCITABINE) [Suspect]
     Indication: MALIGNANT MEDIASTINAL NEOPLASM
     Dosage: 800 MG/M2 OTHER
     Route: 050
  2. PACLITAXEL [Concomitant]
  3. OXALIPLATIN [Concomitant]
  4. DEXAMETHASONE [Concomitant]
  5. ORPHENADRINE [Concomitant]
  6. CIMETIDINE [Concomitant]

REACTIONS (6)
  - DISEASE PROGRESSION [None]
  - DRUG TOXICITY [None]
  - NEUROTOXICITY [None]
  - NEUTROPENIA [None]
  - PERIPHERAL SENSORY NEUROPATHY [None]
  - THROMBOCYTOPENIA [None]
